FAERS Safety Report 7141652-5 (Version None)
Quarter: 2010Q4

REPORT INFORMATION
  Report Type: 
  Country: None (occurrence: None)
  Receive Date: 20101202
  Receipt Date: 20101202
  Transmission Date: 20110411
  Serious: Yes (Other)
  Sender: FDA-Public Use
  Company Number: None

PATIENT
  Sex: Female
  Weight: 56.6996 kg

DRUGS (2)
  1. CITALOPRAM HYDROBROMIDE [Suspect]
     Indication: DEPRESSION
     Dosage: 20 MG ONCE DAILY ORAL
     Route: 048
     Dates: start: 20101020
  2. TRAZODONE HCL [Suspect]
     Indication: DECREASED APPETITE
     Dosage: 100 MG ONCE DIALY ORAL
     Route: 048
     Dates: start: 20101020

REACTIONS (15)
  - AGITATION [None]
  - ANXIETY [None]
  - DECREASED APPETITE [None]
  - DEPRESSION [None]
  - DIZZINESS [None]
  - DRY MOUTH [None]
  - FATIGUE [None]
  - MENTAL IMPAIRMENT [None]
  - MUSCLE RIGIDITY [None]
  - MUSCLE SPASMS [None]
  - MUSCULAR WEAKNESS [None]
  - PARAESTHESIA [None]
  - POLYDIPSIA [None]
  - RESPIRATORY DEPRESSION [None]
  - SLEEP APNOEA SYNDROME [None]
